FAERS Safety Report 4331397-9 (Version None)
Quarter: 2004Q1

REPORT INFORMATION
  Report Type: 
  Country: None (occurrence: None)
  Receive Date: 20040329
  Receipt Date: 20040315
  Transmission Date: 20041129
  Serious: Yes (Hospitalization)
  Sender: FDA-Public Use
  Company Number: 2004012395

PATIENT
  Sex: Female

DRUGS (4)
  1. ZARONTIN [Suspect]
     Indication: CONVULSION
     Dosage: 750 MG (TID), ORAL
     Route: 048
     Dates: start: 19700101
  2. PHENOBARBITAL TAB [Suspect]
     Indication: CONVULSION
     Dosage: 97.2 MG (TID), ORAL
     Route: 048
     Dates: start: 19700101
  3. CALCIUM CARBONATE (CALCIUM CARBONATE) [Suspect]
     Indication: MINERAL SUPPLEMENTATION
     Dosage: ORAL
     Route: 048
  4. ESTROGEN NOS (ESTROGEN NOS) [Concomitant]

REACTIONS (7)
  - DIARRHOEA [None]
  - GASTROINTESTINAL PAIN [None]
  - HYPERPHAGIA [None]
  - INGUINAL HERNIA [None]
  - LACTOSE INTOLERANCE [None]
  - URTICARIA [None]
  - WEIGHT INCREASED [None]
